FAERS Safety Report 12519993 (Version 1)
Quarter: 2016Q2

REPORT INFORMATION
  Report Type: Spontaneous
  Country: US (occurrence: US)
  Receive Date: 20160630
  Receipt Date: 20160630
  Transmission Date: 20160815
  Serious: No
  Sender: FDA-Public Use
  Company Number: US-PFIZER INC-2016291516

PATIENT
  Age: 53 Year
  Sex: Female
  Weight: 43 kg

DRUGS (1)
  1. ADVIL [Suspect]
     Active Substance: IBUPROFEN
     Dosage: UNK
     Dates: start: 1999, end: 2014

REACTIONS (3)
  - Intentional product use issue [Unknown]
  - Abdominal pain upper [Unknown]
  - Mouth haemorrhage [Unknown]
